FAERS Safety Report 16023879 (Version 2)
Quarter: 2019Q1

REPORT INFORMATION
  Report Type: Report from Study
  Country: PK (occurrence: PK)
  Receive Date: 20190301
  Receipt Date: 20190319
  Transmission Date: 20190418
  Serious: Yes (Hospitalization, Other)
  Sender: FDA-Public Use
  Company Number: PHHY2019PK046179

PATIENT
  Age: 65 Year
  Sex: Female

DRUGS (4)
  1. EXELON [Concomitant]
     Active Substance: RIVASTIGMINE TARTRATE
     Indication: DEMENTIA
     Dosage: 1 DF, QD
     Route: 065
     Dates: start: 20090101
  2. BRINTELLIX [Concomitant]
     Active Substance: VORTIOXETINE HYDROBROMIDE
     Indication: PRODUCT USED FOR UNKNOWN INDICATION
     Dosage: UNK
     Route: 065
  3. ACLASTA [Suspect]
     Active Substance: ZOLEDRONIC ACID
     Indication: OSTEOPOROSIS
     Dosage: 1 DF, Q12MO
     Route: 042
     Dates: start: 20110101
  4. ACLASTA [Suspect]
     Active Substance: ZOLEDRONIC ACID
     Dosage: 1 DF, Q12MO
     Route: 042
     Dates: start: 20150101, end: 20150101

REACTIONS (10)
  - Feeding disorder [Unknown]
  - Oral mucosal erythema [Unknown]
  - Fall [Unknown]
  - Lymphadenopathy [Unknown]
  - Upper limb fracture [Not Recovered/Not Resolved]
  - Swelling face [Unknown]
  - Hip fracture [Recovered/Resolved]
  - Osteonecrosis of jaw [Unknown]
  - Pain [Unknown]
  - Osteoporosis [Unknown]

NARRATIVE: CASE EVENT DATE: 2011
